FAERS Safety Report 6156149-9 (Version None)
Quarter: 2009Q2

REPORT INFORMATION
  Report Type: 
  Country: None (occurrence: None)
  Receive Date: 20090413
  Receipt Date: 20090413
  Transmission Date: 20091009
  Serious: Yes (Other)
  Sender: FDA-Public Use
  Company Number: None

PATIENT
  Age: 15 Year
  Sex: Male
  Weight: 58.7 kg

DRUGS (10)
  1. XOLAIR [Suspect]
     Indication: ASTHMA
     Dosage: 150MG QMONTH SQ
     Route: 058
     Dates: start: 20061001, end: 20090401
  2. XOLAIR [Suspect]
     Indication: BLOOD IMMUNOGLOBULIN E INCREASED
     Dosage: 150MG QMONTH SQ
     Route: 058
     Dates: start: 20061001, end: 20090401
  3. XOLAIR [Suspect]
     Indication: MULTIPLE ALLERGIES
     Dosage: 150MG QMONTH SQ
     Route: 058
     Dates: start: 20061001, end: 20090401
  4. SINGULAIR [Suspect]
     Indication: ASTHMA
     Dosage: 10MG QDAY PO
     Route: 048
     Dates: start: 20061001, end: 20090401
  5. SINGULAIR [Suspect]
     Indication: MULTIPLE ALLERGIES
     Dosage: 10MG QDAY PO
     Route: 048
     Dates: start: 20061001, end: 20090401
  6. ADVAIR HFA [Concomitant]
  7. PULMICORT-100 [Concomitant]
  8. FLONASE [Concomitant]
  9. ALBUTEROL [Concomitant]
  10. ZYRTEC [Concomitant]

REACTIONS (5)
  - ANKLE FRACTURE [None]
  - BONE FRAGMENTATION [None]
  - FALL [None]
  - FOOT FRACTURE [None]
  - HAND FRACTURE [None]
